FAERS Safety Report 5427047-0 (Version None)
Quarter: 2007Q3

REPORT INFORMATION
  Report Type: 
  Country: None (occurrence: None)
  Receive Date: 20070824
  Receipt Date: 20070824
  Transmission Date: 20080115
  Serious: No
  Sender: FDA-Public Use
  Company Number: None

PATIENT
  Age: 50 Year
  Sex: Female

DRUGS (2)
  1. CISPLATIN [Suspect]
     Indication: OROPHARYNGEAL CANCER STAGE UNSPECIFIED
     Dosage: 100MG/M2 IV
     Route: 042
     Dates: start: 20070430
  2. XRT [Concomitant]

REACTIONS (5)
  - ASTHENIA [None]
  - HYPOACUSIS [None]
  - NAUSEA [None]
  - TINNITUS [None]
  - VOMITING [None]
